FAERS Safety Report 9846194 (Version 1)
Quarter: 2014Q1

REPORT INFORMATION
  Report Type: Spontaneous
  Country: ZA (occurrence: ZA)
  Receive Date: 20140127
  Receipt Date: 20140127
  Transmission Date: 20141002
  Serious: Yes (Other)
  Sender: FDA-Public Use
  Company Number: ZA-JNJFOC-20140113330

PATIENT
  Sex: Male

DRUGS (2)
  1. REVELLEX [Suspect]
     Indication: CROHN^S DISEASE
     Route: 042
     Dates: start: 20130821
  2. REVELLEX [Suspect]
     Indication: CROHN^S DISEASE
     Route: 042
     Dates: start: 20131128

REACTIONS (1)
  - Intestinal fistula [Unknown]
